FAERS Safety Report 23230097 (Version 2)
Quarter: 2023Q4

REPORT INFORMATION
  Report Type: Spontaneous
  Country: US (occurrence: US)
  Receive Date: 20231127
  Receipt Date: 20231129
  Transmission Date: 20240109
  Serious: Yes (Hospitalization, Other)
  Sender: FDA-Public Use
  Company Number: US-UCBSA-2023055765

PATIENT
  Sex: Female

DRUGS (4)
  1. KEPPRA [Suspect]
     Active Substance: LEVETIRACETAM
     Indication: Seizure cluster
     Dosage: UNK
  2. DIASTAT [Concomitant]
     Active Substance: DIAZEPAM
     Indication: Product used for unknown indication
     Dosage: UNK
     Dates: end: 2021
  3. PHENOBARBITAL [Concomitant]
     Active Substance: PHENOBARBITAL
     Indication: Product used for unknown indication
     Dosage: UNK
  4. DEPAKOTE [Concomitant]
     Active Substance: DIVALPROEX SODIUM
     Indication: Product used for unknown indication
     Dosage: UNK

REACTIONS (12)
  - Seizure cluster [Unknown]
  - Hemiparesis [Unknown]
  - Toxicity to various agents [Unknown]
  - Glaucoma [Unknown]
  - Asthenia [Unknown]
  - Concussion [Unknown]
  - Musculoskeletal stiffness [Unknown]
  - Paralysis [Unknown]
  - Reading disorder [Unknown]
  - Irritability [Unknown]
  - Brain injury [Unknown]
  - Aura [Unknown]
